FAERS Safety Report 9942478 (Version 1)
Quarter: 2014Q1

REPORT INFORMATION
  Report Type: Report from Study
  Country: US (occurrence: US)
  Receive Date: 20140303
  Receipt Date: 20140303
  Transmission Date: 20141002
  Serious: No
  Sender: FDA-Public Use
  Company Number: US-ABBVIE-13P-163-1044991-00

PATIENT
  Age: 41 Year
  Sex: Female
  Weight: 83.99 kg

DRUGS (2)
  1. HUMIRA [Suspect]
     Indication: PSORIATIC ARTHROPATHY
     Dates: start: 2011
  2. TRIAMCINALONE CREAM [Concomitant]
     Indication: PSORIATIC ARTHROPATHY

REACTIONS (1)
  - Nasopharyngitis [Not Recovered/Not Resolved]
